FAERS Safety Report 5515069-0 (Version None)
Quarter: 2007Q4

REPORT INFORMATION
  Report Type: 
  Country: None (occurrence: None)
  Receive Date: 20071113
  Receipt Date: 20070105
  Transmission Date: 20080405
  Serious: No
  Sender: FDA-Public Use
  Company Number: A0631614A

PATIENT
  Age: 42 Year
  Sex: Male
  Weight: 98.2 kg

DRUGS (1)
  1. COREG [Suspect]
     Indication: EJECTION FRACTION ABNORMAL
     Dosage: 3.125MG TWICE PER DAY
     Route: 048
     Dates: start: 20061026

REACTIONS (1)
  - ALOPECIA [None]
